FAERS Safety Report 21897960 (Version 1)
Quarter: 2023Q1

REPORT INFORMATION
  Report Type: Spontaneous
  Country: US (occurrence: None)
  Receive Date: 20230120
  Receipt Date: 20230120
  Transmission Date: 20230417
  Serious: No
  Sender: FDA-Public Use
  Company Number: None

PATIENT
  Age: 72 Year
  Sex: Female

DRUGS (1)
  1. H.P. ACTHAR [Suspect]
     Active Substance: CORTICOTROPIN
     Indication: Punctate keratitis
     Dosage: OTHER QUANTITY : 40 UNITS (0.5ML);?FREQUENCY : AS DIRECTED;?INJECT 40 UNITS (0.5ML) SUBCUTANEOUSLY T
     Route: 058
     Dates: start: 202209

REACTIONS (1)
  - Drug ineffective [None]
